FAERS Safety Report 6135376-0 (Version None)
Quarter: 2009Q1

REPORT INFORMATION
  Report Type: 
  Country: None (occurrence: None)
  Receive Date: 20090327
  Receipt Date: 20090317
  Transmission Date: 20090719
  Serious: Yes (Death, Hospitalization)
  Sender: FDA-Public Use
  Company Number: US-PFIZER INC-2009184115

PATIENT
  Sex: Female

DRUGS (16)
  1. SUNITINIB MALATE [Suspect]
     Indication: HEPATIC NEOPLASM
     Dosage: 37.5 MG, 1X/DAY
     Route: 048
     Dates: start: 20090226, end: 20090315
  2. PROPYLTHIOURACIL [Concomitant]
     Indication: HYPERTHYROIDISM
     Dosage: 100 MG, 1X/DAY
     Dates: start: 20080909
  3. OXYCODONE [Concomitant]
     Indication: BACK PAIN
     Dosage: 5 MG, Q8H AS NEEDED
     Dates: start: 20070905
  4. OXYCODONE [Concomitant]
     Indication: ABDOMINAL PAIN
  5. FERROUS SULFATE [Concomitant]
     Indication: IRON DEFICIENCY ANAEMIA
     Dosage: 975 MG, TDS
  6. ENALAPRIL [Concomitant]
     Indication: HYPERTENSION
     Dosage: 20 MG, 1X/DAY
     Dates: start: 20060301
  7. HYDROCHLOROTHIAZIDE [Concomitant]
     Indication: HYPERTENSION
     Dosage: 25 MG, 1X/DAY
     Dates: start: 20080909
  8. FOLIC ACID [Concomitant]
     Indication: ANAEMIA
     Dosage: 1 MG, 1X/DAY
  9. PROMETHAZINE [Concomitant]
     Indication: NAUSEA
     Dosage: 25 MG, Q6H, PRN
  10. REGLAN [Concomitant]
     Indication: GASTRITIS
     Dosage: 5 MG, AC AND HS
     Dates: start: 20090224
  11. PRILOSEC [Concomitant]
     Indication: GASTRITIS
     Dosage: 20 MG, 1X/DAY
     Dates: start: 20090224
  12. SENOKOT [Concomitant]
     Indication: CONSTIPATION
     Dosage: 2 UNK, ATBE
     Dates: start: 20081208
  13. DULCOLAX [Concomitant]
     Indication: CONSTIPATION
     Dosage: 2 TABS, AS NEEDED
     Dates: start: 20090113
  14. FLECTOR [Concomitant]
     Indication: BACK PAIN
     Dosage: 1.3 %, Q 72H, TOPICAL
     Route: 061
     Dates: start: 20090205
  15. ALBUTEROL [Concomitant]
     Indication: DYSPNOEA
     Dosage: 5 MG, QD PRN
     Dates: start: 20060301
  16. MIRALAX [Concomitant]
     Indication: CONSTIPATION
     Dosage: 728 MG, AS NEEDED
     Dates: start: 20090224

REACTIONS (1)
  - ABDOMINAL PAIN [None]
